FAERS Safety Report 5147076-4 (Version None)
Quarter: 2006Q4

REPORT INFORMATION
  Report Type: 
  Country: None (occurrence: None)
  Receive Date: 20061103
  Receipt Date: 20061019
  Transmission Date: 20070319
  Serious: Yes (Death, Life-Threatening, Hospitalization)
  Sender: FDA-Public Use
  Company Number: 2006US002306

PATIENT
  Age: 53 Year
  Sex: Male

DRUGS (1)
  1. AMBISOME [Suspect]
     Indication: ASPERGILLOSIS
     Dosage: 24 MG, WEEKLY, RESPIRATORY
     Route: 055
     Dates: start: 20060531, end: 20060904

REACTIONS (2)
  - ABDOMINAL PAIN [None]
  - FUNGAL INFECTION [None]
